FAERS Safety Report 21043425 (Version 2)
Quarter: 2022Q3

REPORT INFORMATION
  Report Type: Spontaneous
  Country: EG (occurrence: EG)
  Receive Date: 20220705
  Receipt Date: 20220707
  Transmission Date: 20221026
  Serious: No
  Sender: FDA-Public Use
  Company Number: EG-PFIZER INC-PV202200014351

PATIENT
  Age: 30 Year
  Sex: Male

DRUGS (2)
  1. SUTENT [Suspect]
     Active Substance: SUNITINIB MALATE
     Indication: Metastatic renal cell carcinoma
     Dosage: 50 MG, CYCLIC WEEKS ON AND 2 WEEKS OFF
     Route: 048
  2. SUTENT [Suspect]
     Active Substance: SUNITINIB MALATE
     Dosage: SUTENT 12.5 MG - 3 TABS DAILY

REACTIONS (2)
  - Neoplasm progression [Unknown]
  - Off label use [Unknown]
